FAERS Safety Report 8282277-8 (Version None)
Quarter: 2012Q2

REPORT INFORMATION
  Report Type: 
  Country: None (occurrence: None)
  Receive Date: 20120413
  Receipt Date: 20120405
  Transmission Date: 20120825
  Serious: Yes (Disabling, Other)
  Sender: FDA-Public Use
  Company Number: CH-JNJFOC-20120402136

PATIENT
  Age: 58 Year
  Sex: Female

DRUGS (2)
  1. TOPAMAX [Suspect]
     Route: 048
     Dates: start: 20120301, end: 20120403
  2. TOPAMAX [Suspect]
     Indication: MIGRAINE PROPHYLAXIS
     Route: 048
     Dates: start: 20120316, end: 20120301

REACTIONS (9)
  - MANIA [None]
  - FATIGUE [None]
  - DRY MOUTH [None]
  - INSOMNIA [None]
  - WEIGHT DECREASED [None]
  - EUPHORIC MOOD [None]
  - DECREASED APPETITE [None]
  - DYSARTHRIA [None]
  - AGITATION [None]
